FAERS Safety Report 19814496 (Version 16)
Quarter: 2025Q3

REPORT INFORMATION
  Report Type: Report from Study
  Country: EU (occurrence: EU)
  Receive Date: 20210910
  Receipt Date: 20250715
  Transmission Date: 20251020
  Serious: Yes (Other)
  Sender: PFIZER
  Company Number: EU-PFM-2020-13959

PATIENT
  Age: 32 Year
  Sex: Female

DRUGS (17)
  1. ENCORAFENIB [Suspect]
     Active Substance: ENCORAFENIB
     Indication: Malignant melanoma
     Dosage: 450 MG, 1X/DAY
     Route: 048
     Dates: start: 20191121, end: 20210606
  2. BINIMETINIB [Suspect]
     Active Substance: BINIMETINIB
     Indication: Malignant melanoma
     Dosage: 45 MG, 2X/DAY
     Route: 048
     Dates: start: 20191121, end: 20210606
  3. ZOMETA [Concomitant]
     Active Substance: ZOLEDRONIC ACID
     Indication: Metastases to bone
     Route: 065
     Dates: start: 20191125
  4. LEVETIRACETAM [Concomitant]
     Active Substance: LEVETIRACETAM
     Indication: Metastases to central nervous system
     Route: 065
     Dates: start: 2019
  5. LEVETIRACETAM [Concomitant]
     Active Substance: LEVETIRACETAM
     Indication: Prophylaxis
  6. DEXAMETHASONE SODIUM PHOSPHATE [Concomitant]
     Active Substance: DEXAMETHASONE SODIUM PHOSPHATE
     Indication: Metastases to spine
     Route: 065
     Dates: start: 20210125, end: 20210220
  7. DEXAMETHASONE SODIUM PHOSPHATE [Concomitant]
     Active Substance: DEXAMETHASONE SODIUM PHOSPHATE
     Indication: Malignant neoplasm progression
  8. DEXAMETHASONE SODIUM PHOSPHATE [Concomitant]
     Active Substance: DEXAMETHASONE SODIUM PHOSPHATE
     Indication: Metastasis
  9. POLYETHYLENE GLYCOL 3350\POTASSIUM CHLORIDE\SODIUM BICARBONATE\SODIUM [Concomitant]
     Active Substance: POLYETHYLENE GLYCOL 3350\POTASSIUM CHLORIDE\SODIUM BICARBONATE\SODIUM CHLORIDE
     Indication: Prophylaxis
     Route: 065
     Dates: start: 20210304, end: 20210604
  10. SIALIN [CARMELLOSE SODIUM;ELECTROLYTES NOS] [Concomitant]
     Indication: Dry mouth
     Route: 065
     Dates: start: 20210701, end: 20210831
  11. ASPIRIN [Concomitant]
     Active Substance: ASPIRIN
     Indication: Prophylaxis
     Route: 065
     Dates: start: 20210531, end: 20211130
  12. UNSPECIFIED INGREDIENT [Concomitant]
     Active Substance: UNSPECIFIED INGREDIENT
     Indication: Prophylaxis
     Route: 065
     Dates: start: 20200410, end: 202004
  13. UNSPECIFIED INGREDIENT [Concomitant]
     Active Substance: UNSPECIFIED INGREDIENT
     Dates: start: 202004, end: 202004
  14. COMIRNATY [Concomitant]
     Indication: COVID-19 immunisation
     Route: 065
     Dates: start: 20210324, end: 20210324
  15. COMIRNATY [Concomitant]
     Route: 065
     Dates: start: 20210414, end: 20210414
  16. COMIRNATY [Concomitant]
     Route: 065
     Dates: start: 20211130, end: 20211130
  17. COMIRNATY [Concomitant]
     Route: 065
     Dates: start: 20220906, end: 20220906

REACTIONS (20)
  - Dry skin [Recovered/Resolved]
  - Face oedema [Recovered/Resolved]
  - Dry mouth [Recovered/Resolved]
  - Decreased appetite [Recovered/Resolved]
  - Dry skin [Recovered/Resolved]
  - Diarrhoea [Recovered/Resolved]
  - Pyrexia [Recovered/Resolved]
  - Blood creatine phosphokinase increased [Recovered/Resolved]
  - Dry skin [Recovered/Resolved]
  - Dry skin [Recovered/Resolved]
  - Pain [Recovered/Resolved]
  - Tumour pain [Recovered/Resolved]
  - Otitis externa [Recovered/Resolved]
  - Pain [Recovered/Resolved]
  - Body tinea [Recovered/Resolved]
  - Influenza like illness [Recovered/Resolved]
  - Abdominal pain [Recovered/Resolved]
  - Gamma-glutamyltransferase increased [Recovered/Resolved]
  - Rash maculo-papular [Recovered/Resolved]
  - Rash maculo-papular [Recovered/Resolved]

NARRATIVE: CASE EVENT DATE: 20191223
